FAERS Safety Report 8378446-9 (Version None)
Quarter: 2012Q2

REPORT INFORMATION
  Report Type: 
  Country: None (occurrence: None)
  Receive Date: 20120522
  Receipt Date: 20120229
  Transmission Date: 20120825
  Serious: No
  Sender: FDA-Public Use
  Company Number: US-ASTRAZENECA-2012SE11733

PATIENT
  Age: 46 Year
  Sex: Male

DRUGS (5)
  1. PRILOSEC [Suspect]
     Dosage: TRIPLE THE DOSE
     Route: 048
  2. NEXIUM [Concomitant]
  3. PRILOSEC [Suspect]
     Route: 048
  4. PRILOSEC [Suspect]
     Dosage: DOUBLE THE DOSE
     Route: 048
  5. PRILOSEC [Suspect]
     Route: 048

REACTIONS (2)
  - DRUG INEFFECTIVE [None]
  - INCORRECT DOSE ADMINISTERED [None]
